FAERS Safety Report 6248094-5 (Version None)
Quarter: 2009Q2

REPORT INFORMATION
  Report Type: 
  Country: None (occurrence: None)
  Receive Date: 20090624
  Receipt Date: 20090624
  Transmission Date: 20091009
  Serious: Yes (Other)
  Sender: FDA-Public Use
  Company Number: None

PATIENT
  Age: 67 Year
  Sex: Female
  Weight: 77.1115 kg

DRUGS (1)
  1. BENICAR [Suspect]
     Indication: HYPERTENSION
     Dosage: 40 MG 1/DAY
     Dates: start: 20090515, end: 20090522

REACTIONS (4)
  - BLOOD GLUCOSE INCREASED [None]
  - PRURITUS [None]
  - RASH [None]
  - URTICARIA [None]
